FAERS Safety Report 10877326 (Version 2)
Quarter: 2015Q1

REPORT INFORMATION
  Report Type: Report from Study
  Country: TR (occurrence: TR)
  Receive Date: 20150302
  Receipt Date: 20150319
  Transmission Date: 20150721
  Serious: Yes (Death, Hospitalization, Other)
  Sender: FDA-Public Use
  Company Number: TR-EMD SERONO-8007922

PATIENT
  Age: 25 Year
  Sex: Male
  Weight: 11 kg

DRUGS (3)
  1. EUTHYROX [Concomitant]
     Active Substance: LEVOTHYROXINE SODIUM
     Indication: HYPOTHYROIDISM
     Dates: start: 200902
  2. GENKORT [Concomitant]
     Indication: BLOOD CORTISOL DECREASED
     Dates: start: 200902
  3. SAIZEN [Suspect]
     Active Substance: SOMATROPIN
     Indication: GROWTH HORMONE DEFICIENCY
     Dates: start: 20130601, end: 20150130

REACTIONS (5)
  - Pyrexia [Recovered/Resolved]
  - Brain oedema [Fatal]
  - Cerebral haemorrhage [Fatal]
  - Brain death [Unknown]
  - Seizure [Not Recovered/Not Resolved]

NARRATIVE: CASE EVENT DATE: 20150128
